FAERS Safety Report 9218165 (Version 7)
Quarter: 2016Q3

REPORT INFORMATION
  Report Type: Spontaneous
  Country: US (occurrence: US)
  Receive Date: 20130408
  Receipt Date: 20160822
  Transmission Date: 20161109
  Serious: Yes (Hospitalization, Other)
  Sender: FDA-Public Use
  Company Number: US-009507513-1304USA002741

PATIENT
  Sex: Male
  Weight: 246 kg

DRUGS (3)
  1. PROPECIA [Suspect]
     Active Substance: FINASTERIDE
     Indication: ALOPECIA
     Dosage: 1 MG, UNK
     Route: 048
     Dates: start: 20000317, end: 20070412
  2. PROSCAR [Suspect]
     Active Substance: FINASTERIDE
     Indication: ALOPECIA
     Dosage: 5 MG CUT INTO SMALLER DOSES
     Route: 048
     Dates: start: 20000317, end: 20070412
  3. FINASTERIDE. [Suspect]
     Active Substance: FINASTERIDE
     Indication: ALOPECIA
     Dosage: 1 MG, UNK
     Route: 048
     Dates: start: 20000317, end: 20070412

REACTIONS (29)
  - Respiratory failure [Unknown]
  - Sleep apnoea syndrome [Unknown]
  - Asthenia [Unknown]
  - Nephrolithiasis [Unknown]
  - Diverticulitis [Unknown]
  - Rhabdomyolysis [Recovered/Resolved]
  - Wrong technique in product usage process [Unknown]
  - Benign prostatic hyperplasia [Unknown]
  - Erectile dysfunction [Not Recovered/Not Resolved]
  - Depression [Not Recovered/Not Resolved]
  - Agitation [Recovered/Resolved]
  - Gynaecomastia [Not Recovered/Not Resolved]
  - Ejaculation disorder [Not Recovered/Not Resolved]
  - Colectomy [Unknown]
  - Drug administration error [Unknown]
  - Hypercholesterolaemia [Unknown]
  - Drug abuse [Unknown]
  - Sexual dysfunction [Not Recovered/Not Resolved]
  - Encephalopathy [Recovered/Resolved]
  - Blood testosterone decreased [Not Recovered/Not Resolved]
  - Anxiety [Unknown]
  - Urinary tract disorder [Unknown]
  - Libido decreased [Not Recovered/Not Resolved]
  - Testicular failure [Unknown]
  - Cognitive disorder [Not Recovered/Not Resolved]
  - Implant site erythema [Unknown]
  - Haematuria [Unknown]
  - Obesity [Unknown]
  - Hypogonadism [Unknown]

NARRATIVE: CASE EVENT DATE: 2000
